FAERS Safety Report 14151279 (Version 2)
Quarter: 2018Q1

REPORT INFORMATION
  Report Type: Other
  Country: GB (occurrence: GB)
  Receive Date: 20171102
  Receipt Date: 20180125
  Transmission Date: 20180508
  Serious: Yes (Hospitalization, Other)
  Sender: FDA-Public Use
  Company Number: GB-LUPIN PHARMACEUTICALS INC.-2017-06106

PATIENT

DRUGS (5)
  1. SERTRALINE HYDROCHLORIDE. [Suspect]
     Active Substance: SERTRALINE HYDROCHLORIDE
     Indication: GENERALISED ANXIETY DISORDER
     Dosage: 200 MG, QD
     Route: 048
  2. DIAZEPAM. [Concomitant]
     Active Substance: DIAZEPAM
     Indication: PRODUCT USED FOR UNKNOWN INDICATION
     Dosage: UNK
     Route: 065
  3. GABAPENTIN. [Suspect]
     Active Substance: GABAPENTIN
     Indication: BACK PAIN
     Dosage: UNK
     Route: 048
  4. TRAMADOL. [Suspect]
     Active Substance: TRAMADOL
     Indication: BACK PAIN
     Dosage: 100 MG, QID
     Route: 048
  5. AMITRIPTYLINE HYDROCHLORIDE. [Suspect]
     Active Substance: AMITRIPTYLINE HYDROCHLORIDE
     Indication: BACK PAIN
     Dosage: 100 MG, QD, AT NIGHT
     Route: 048

REACTIONS (1)
  - Serotonin syndrome [Recovering/Resolving]

NARRATIVE: CASE EVENT DATE: 20170925
